FAERS Safety Report 9109295 (Version 1)
Quarter: 2013Q1

REPORT INFORMATION
  Report Type: Spontaneous
  Country: MX (occurrence: MX)
  Receive Date: 20130222
  Receipt Date: 20130222
  Transmission Date: 20140127
  Serious: Yes (Death, Hospitalization)
  Sender: FDA-Public Use
  Company Number: PHHY2013MX017332

PATIENT
  Age: 83 Year
  Sex: Female

DRUGS (1)
  1. TRILEPTAL [Suspect]
     Indication: EPILEPSY
     Dosage: 12 MG (6G/100ML), DAILY
     Route: 048
     Dates: start: 20120515

REACTIONS (2)
  - Convulsion [Fatal]
  - Cardiac arrest [Fatal]
